FAERS Safety Report 24573223 (Version 1)
Quarter: 2024Q4

REPORT INFORMATION
  Report Type: Report from Study
  Country: GB (occurrence: GB)
  Receive Date: 20241101
  Receipt Date: 20241101
  Transmission Date: 20250115
  Serious: Yes (Other)
  Sender: SAMSUNG BIOEPIS
  Company Number: GB-SAMSUNG BIOEPIS-SB-2024-31402

PATIENT
  Age: 69 Year
  Sex: Female

DRUGS (1)
  1. ETANERCEPT [Suspect]
     Active Substance: ETANERCEPT
     Indication: Psoriatic arthropathy
     Route: 058

REACTIONS (8)
  - Diverticulitis [Unknown]
  - Haematochezia [Unknown]
  - Haemorrhage [Unknown]
  - Asthenia [Unknown]
  - Haematuria [Unknown]
  - Urinary tract infection [Unknown]
  - Adenoma benign [Unknown]
  - Gastroenteritis viral [Unknown]
